FAERS Safety Report 7528241-5 (Version None)
Quarter: 2011Q2

REPORT INFORMATION
  Report Type: 
  Country: None (occurrence: None)
  Receive Date: 20110607
  Receipt Date: 20100722
  Transmission Date: 20111010
  Serious: No
  Sender: FDA-Public Use
  Company Number: US-ASTRAZENECA-2009SE26227

PATIENT
  Age: 62 Year
  Sex: Female
  Weight: 95.3 kg

DRUGS (3)
  1. MEDICATION FOR THYROID [Concomitant]
  2. PRILOSEC [Suspect]
     Indication: GASTROOESOPHAGEAL REFLUX DISEASE
     Route: 048
  3. NEXIUM [Suspect]
     Indication: GASTROOESOPHAGEAL REFLUX DISEASE
     Route: 048
     Dates: start: 20060101

REACTIONS (3)
  - DRUG INEFFECTIVE [None]
  - MACULAR DEGENERATION [None]
  - CONDITION AGGRAVATED [None]
